FAERS Safety Report 4325863-X (Version None)
Quarter: 2004Q1

REPORT INFORMATION
  Report Type: 
  Country: None (occurrence: None)
  Receive Date: 20040329
  Receipt Date: 20040318
  Transmission Date: 20041129
  Serious: Yes (Hospitalization)
  Sender: FDA-Public Use
  Company Number: JP-MERCK-0403USA01704

PATIENT
  Age: 57 Year
  Sex: Female
  Weight: 48 kg

DRUGS (9)
  1. FOSAMAX [Suspect]
     Indication: OSTEOPOROSIS
     Route: 048
     Dates: start: 20031101, end: 20040101
  2. DILAZEP HYDROCHLORIDE [Concomitant]
     Indication: GLOMERULONEPHRITIS PROLIFERATIVE
     Route: 065
     Dates: start: 20021001, end: 20040101
  3. LANSOPRAZOLE [Concomitant]
     Route: 065
     Dates: start: 20031101, end: 20040101
  4. COZAAR [Concomitant]
     Indication: HYPERTENSION
     Route: 065
     Dates: start: 20020801
  5. MANIDIPINE HYDROCHLORIDE [Concomitant]
     Indication: HYPERTENSION
     Route: 065
     Dates: start: 20020801
  6. PREDNISOLONE [Concomitant]
     Indication: GLOMERULONEPHRITIS PROLIFERATIVE
     Route: 065
     Dates: start: 20021001
  7. PREDNISOLONE [Concomitant]
     Route: 065
     Dates: start: 20031101
  8. SUCRALFATE [Concomitant]
     Route: 065
     Dates: start: 20031201
  9. TRIAZOLAM [Concomitant]
     Route: 065
     Dates: start: 20031101

REACTIONS (9)
  - ALANINE AMINOTRANSFERASE INCREASED [None]
  - ASPARTATE AMINOTRANSFERASE INCREASED [None]
  - BACK PAIN [None]
  - BLOOD ALKALINE PHOSPHATASE INCREASED [None]
  - BLOOD LACTATE DEHYDROGENASE INCREASED [None]
  - GAMMA-GLUTAMYLTRANSFERASE INCREASED [None]
  - HEPATIC FUNCTION ABNORMAL [None]
  - LYMPHOCYTE STIMULATION TEST POSITIVE [None]
  - MALAISE [None]
